FAERS Safety Report 16813935 (Version 2)
Quarter: 2019Q3

REPORT INFORMATION
  Report Type: Spontaneous
  Country: CA (occurrence: CA)
  Receive Date: 20190917
  Receipt Date: 20190918
  Transmission Date: 20191005
  Serious: Yes (Congenital Anomaly)
  Sender: FDA-Public Use
  Company Number: CA-JNJFOC-20190908030

PATIENT
  Sex: Male

DRUGS (22)
  1. D-ALPHA TOCOPHERYL ACETATE [Suspect]
     Active Substance: .ALPHA.-TOCOPHEROL ACETATE, D-
     Indication: FOETAL EXPOSURE DURING PREGNANCY
     Route: 064
  2. IODINE. [Suspect]
     Active Substance: IODINE
     Indication: FOETAL EXPOSURE DURING PREGNANCY
     Route: 064
  3. MAGNESIUM                          /00123201/ [Suspect]
     Active Substance: MAGNESIUM HYDROXIDE
     Indication: FOETAL EXPOSURE DURING PREGNANCY
     Route: 064
  4. PYRIDOXINE HYDROCHLORIDE. [Suspect]
     Active Substance: PYRIDOXINE HYDROCHLORIDE
     Indication: FOETAL EXPOSURE DURING PREGNANCY
     Route: 064
  5. THIAMINE HYDROCHLORIDE. [Suspect]
     Active Substance: THIAMINE HYDROCHLORIDE
     Indication: FOETAL EXPOSURE DURING PREGNANCY
     Route: 064
  6. CALCIUM D-PANTOTHENATE [Suspect]
     Active Substance: CALCIUM PANTOTHENATE
     Indication: FOETAL EXPOSURE DURING PREGNANCY
     Route: 064
  7. ERGOCALCIFEROL. [Suspect]
     Active Substance: ERGOCALCIFEROL
     Indication: FOETAL EXPOSURE DURING PREGNANCY
     Route: 064
  8. MANGANESE [Suspect]
     Active Substance: MANGANESE CHLORIDE
     Indication: FOETAL EXPOSURE DURING PREGNANCY
     Route: 064
  9. PREPULSID [Suspect]
     Active Substance: CISAPRIDE
     Indication: FOETAL EXPOSURE DURING PREGNANCY
     Route: 064
  10. VITAMIN A                          /00056001/ [Suspect]
     Active Substance: RETINOL
     Indication: FOETAL EXPOSURE DURING PREGNANCY
     Route: 064
  11. NICOTINAMIDE [Suspect]
     Active Substance: NIACINAMIDE
     Indication: FOETAL EXPOSURE DURING PREGNANCY
     Route: 065
  12. RIBOFLAVIN [Suspect]
     Active Substance: RIBOFLAVIN
     Indication: FOETAL EXPOSURE DURING PREGNANCY
     Route: 064
  13. PEPCID [Suspect]
     Active Substance: FAMOTIDINE
     Indication: FOETAL EXPOSURE DURING PREGNANCY
     Route: 064
  14. BIOTIN [Suspect]
     Active Substance: BIOTIN
     Indication: FOETAL EXPOSURE DURING PREGNANCY
     Route: 064
  15. CHROMIUM [Suspect]
     Active Substance: CHROMIC CHLORIDE\CHROMIUM
     Indication: FOETAL EXPOSURE DURING PREGNANCY
     Route: 064
  16. COPPER [Suspect]
     Active Substance: COPPER
     Indication: FOETAL EXPOSURE DURING PREGNANCY
     Route: 064
  17. IRON [Suspect]
     Active Substance: IRON
     Indication: FOETAL EXPOSURE DURING PREGNANCY
     Route: 064
  18. MOLYBDENUM [Suspect]
     Active Substance: MOLYBDENUM
     Indication: FOETAL EXPOSURE DURING PREGNANCY
     Route: 064
  19. CALCIUM [Suspect]
     Active Substance: CALCIUM
     Indication: FOETAL EXPOSURE DURING PREGNANCY
     Route: 064
  20. FOLIC ACID. [Suspect]
     Active Substance: FOLIC ACID
     Indication: FOETAL EXPOSURE DURING PREGNANCY
     Route: 064
  21. VITAMIN B12 [Suspect]
     Active Substance: CYANOCOBALAMIN
     Indication: FOETAL EXPOSURE DURING PREGNANCY
     Route: 064
  22. VITAMIN C [Suspect]
     Active Substance: ASCORBIC ACID
     Indication: FOETAL EXPOSURE DURING PREGNANCY
     Route: 064

REACTIONS (1)
  - Respiratory distress [Unknown]
